FAERS Safety Report 8010476-9 (Version None)
Quarter: 2011Q4

REPORT INFORMATION
  Report Type: 
  Country: None (occurrence: None)
  Receive Date: 20111228
  Receipt Date: 20111214
  Transmission Date: 20120403
  Serious: Yes (Hospitalization)
  Sender: FDA-Public Use
  Company Number: IT-CELGENEUS-083-20785-11113441

PATIENT
  Sex: Female

DRUGS (6)
  1. THALIDOMIDE [Suspect]
     Indication: MULTIPLE MYELOMA
     Dosage: 100 MILLIGRAM
     Route: 048
     Dates: start: 20110808, end: 20111018
  2. LAMIVUDINE [Concomitant]
     Route: 048
     Dates: start: 20110620, end: 20111122
  3. SEQUACOR [Concomitant]
     Route: 048
     Dates: start: 20090101, end: 20111122
  4. VALSARTAN [Concomitant]
     Route: 048
     Dates: start: 20090101, end: 20111122
  5. ASPIRIN [Concomitant]
     Route: 048
     Dates: start: 20110101, end: 20111122
  6. URSOBIL [Concomitant]
     Route: 048
     Dates: start: 20090101, end: 20111122

REACTIONS (3)
  - CONFUSIONAL STATE [None]
  - APHASIA [None]
  - TRANSIENT ISCHAEMIC ATTACK [None]
